FAERS Safety Report 6162001-5 (Version None)
Quarter: 2009Q2

REPORT INFORMATION
  Report Type: 
  Country: None (occurrence: None)
  Receive Date: 20090421
  Receipt Date: 20090416
  Transmission Date: 20091009
  Serious: Yes (Hospitalization)
  Sender: FDA-Public Use
  Company Number: ES-MERCK-0903ESP00032

PATIENT
  Age: 93 Year
  Sex: Male

DRUGS (7)
  1. PRIMAXIN [Suspect]
     Indication: PROPHYLAXIS
     Route: 042
     Dates: start: 20080625, end: 20080731
  2. NEXIUM [Concomitant]
     Indication: PROPHYLAXIS AGAINST GASTROINTESTINAL ULCER
     Route: 048
     Dates: start: 20080625, end: 20080721
  3. NOLOTIL [Concomitant]
     Indication: PAIN
     Route: 042
     Dates: start: 20080625, end: 20080721
  4. HALOPERIDOL [Concomitant]
     Indication: AGITATION
     Route: 030
     Dates: start: 20080630, end: 20080721
  5. ENOXAPARIN SODIUM [Concomitant]
     Indication: ANTICOAGULANT THERAPY
     Route: 058
     Dates: start: 20080625, end: 20080721
  6. PRIMPERAN [Concomitant]
     Indication: VOMITING
     Route: 030
     Dates: start: 20080625, end: 20080721
  7. VALIUM [Concomitant]
     Indication: AGITATION
     Route: 030
     Dates: start: 20080630, end: 20080721

REACTIONS (2)
  - CONVULSION [None]
  - NEUROTOXICITY [None]
